FAERS Safety Report 5359057-6 (Version None)
Quarter: 2007Q2

REPORT INFORMATION
  Report Type: 
  Country: None (occurrence: None)
  Receive Date: 20070615
  Receipt Date: 20070604
  Transmission Date: 20071010
  Serious: No
  Sender: FDA-Public Use
  Company Number: FR-ELI_LILLY_AND_COMPANY-FR200704005484

PATIENT
  Age: 51 Year
  Sex: Female
  Weight: 45 kg

DRUGS (4)
  1. LAMALINE [Concomitant]
  2. FORTEO [Suspect]
     Indication: OSTEOPOROSIS
     Dosage: 20 UG, DAILY (1/D)
     Route: 058
     Dates: start: 20051220
  3. LEVOTHYROXINE SODIUM [Concomitant]
     Dosage: UNK, UNK
     Route: 048
     Dates: start: 20061101
  4. ANTIDEPRESSANTS [Concomitant]
     Dates: start: 20070201

REACTIONS (2)
  - ASTHENIA [None]
  - FATIGUE [None]
